FAERS Safety Report 7304355-X (Version None)
Quarter: 2011Q1

REPORT INFORMATION
  Report Type: 
  Country: None (occurrence: None)
  Receive Date: 20110221
  Receipt Date: 20110209
  Transmission Date: 20110831
  Serious: Yes (Other)
  Sender: FDA-Public Use
  Company Number: ZA-ELI_LILLY_AND_COMPANY-ZA201102002855

PATIENT
  Sex: Female

DRUGS (3)
  1. HUMALOG [Suspect]
  2. HUMULIN R [Suspect]
     Indication: TYPE 2 DIABETES MELLITUS
     Dosage: 30 U, UNK
  3. HUMULIN N [Suspect]

REACTIONS (2)
  - WRONG DRUG ADMINISTERED [None]
  - DIABETIC COMA [None]
